FAERS Safety Report 24707935 (Version 1)
Quarter: 2024Q4

REPORT INFORMATION
  Report Type: Spontaneous
  Country: US (occurrence: US)
  Receive Date: 20241206
  Receipt Date: 20241206
  Transmission Date: 20250115
  Serious: No
  Sender: Krystal Biotech
  Company Number: US-KRYSTAL BIOTECH, INC.-2024KRYUS00167

PATIENT
  Age: 16 Year
  Sex: Female

DRUGS (1)
  1. VYJUVEK [Suspect]
     Active Substance: BEREMAGENE GEPERPAVEC-SVDT
     Indication: Epidermolysis bullosa

REACTIONS (1)
  - Acne [Unknown]
